FAERS Safety Report 19178605 (Version 1)
Quarter: 2021Q2

REPORT INFORMATION
  Report Type: Spontaneous
  Country: US (occurrence: US)
  Receive Date: 20210426
  Receipt Date: 20210426
  Transmission Date: 20210717
  Serious: No
  Sender: FDA-Public Use
  Company Number: US-BAYER-2021-130704

PATIENT
  Age: 7 Year
  Sex: Male

DRUGS (1)
  1. CLARITIN [Suspect]
     Active Substance: LORATADINE
     Indication: HYPERSENSITIVITY
     Dosage: 0.5 DF
     Route: 048
     Dates: start: 20210421, end: 20210423

REACTIONS (2)
  - Incorrect dose administered [Unknown]
  - Abdominal pain upper [Unknown]
